FAERS Safety Report 17096933 (Version 1)
Quarter: 2019Q4

REPORT INFORMATION
  Report Type: Spontaneous
  Country: IN (occurrence: IN)
  Receive Date: 20191202
  Receipt Date: 20191202
  Transmission Date: 20200122
  Serious: Yes (Other)
  Sender: FDA-Public Use
  Company Number: IN-LUPIN PHARMACEUTICALS INC.-2019-07862

PATIENT
  Age: 58 Year
  Sex: Male

DRUGS (1)
  1. TRIAMCINOLONE ACETONIDE. [Suspect]
     Active Substance: TRIAMCINOLONE ACETONIDE
     Indication: DIABETIC RETINAL OEDEMA
     Dosage: 1 DOSAGE FORM, SINGLE (TOTAL) POSTERIOR SUB-TENON^S (PST) INJECTION
     Route: 031

REACTIONS (5)
  - Blindness [Recovering/Resolving]
  - Retinal deposits [Not Recovered/Not Resolved]
  - Vitreous haemorrhage [Recovering/Resolving]
  - Open globe injury [Recovering/Resolving]
  - Retinal haemorrhage [Recovering/Resolving]
